FAERS Safety Report 7910008-7 (Version None)
Quarter: 2011Q4

REPORT INFORMATION
  Report Type: 
  Country: None (occurrence: None)
  Receive Date: 20111111
  Receipt Date: 20111108
  Transmission Date: 20120403
  Serious: Yes (Hospitalization)
  Sender: FDA-Public Use
  Company Number: US-CELGENEUS-163-21880-11032846

PATIENT
  Sex: Male

DRUGS (16)
  1. NEURONTIN [Concomitant]
     Route: 065
  2. COMPAZINE [Concomitant]
     Route: 065
  3. REVLIMID [Suspect]
     Indication: MULTIPLE MYELOMA
     Dosage: 15 MILLIGRAM
     Route: 048
     Dates: start: 20110221, end: 20110426
  4. ACYCLOVIR [Concomitant]
     Route: 065
  5. DECADRON [Concomitant]
     Route: 065
  6. RESTORIL [Concomitant]
     Route: 065
  7. LASIX [Concomitant]
     Route: 065
  8. MIRALAX [Concomitant]
     Route: 065
  9. DULCOLAX [Concomitant]
     Route: 065
  10. VICODIN [Concomitant]
     Route: 065
  11. MORPHINE [Concomitant]
     Route: 065
  12. CARDIZEM [Concomitant]
     Route: 065
  13. SENOKOT [Concomitant]
     Route: 065
  14. XANAX [Concomitant]
     Route: 065
  15. FLOMAX [Concomitant]
     Route: 065
  16. VITAMIN D [Concomitant]
     Route: 065

REACTIONS (4)
  - RASH [None]
  - ABDOMINAL PAIN [None]
  - ILEUS [None]
  - GASTRITIS [None]
